FAERS Safety Report 10102749 (Version 1)
Quarter: 2014Q2

REPORT INFORMATION
  Report Type: Spontaneous
  Country: DE (occurrence: DE)
  Receive Date: 20140424
  Receipt Date: 20140424
  Transmission Date: 20141212
  Serious: Yes (Death, Life-Threatening, Other)
  Sender: FDA-Public Use
  Company Number: DE-ROXANE LABORATORIES, INC.-2014-RO-00643RO

PATIENT
  Age: 42 Year
  Sex: Female

DRUGS (6)
  1. METHOTREXATE [Suspect]
     Indication: SJOGREN^S SYNDROME
     Dosage: ONCE PER WEEK
     Route: 048
     Dates: start: 2009, end: 2012
  2. AZATHIOPRINE [Suspect]
     Indication: SJOGREN^S SYNDROME
     Route: 065
     Dates: start: 2008, end: 2012
  3. CYCLOPHOSPHAMIDE TABLETS USP [Suspect]
     Indication: SJOGREN^S SYNDROME
     Dosage: 1000 MG
     Route: 065
     Dates: start: 2008, end: 2009
  4. METHOTREXATE [Suspect]
     Indication: SJOGREN^S SYNDROME
     Dosage: ONCE PER WEEK
     Route: 058
     Dates: start: 2009, end: 2012
  5. RITUXIMAB [Suspect]
     Indication: SJOGREN^S SYNDROME
     Route: 042
     Dates: start: 2010, end: 2012
  6. IMMUNOGLOBULINS [Concomitant]
     Indication: SJOGREN^S SYNDROME
     Route: 042
     Dates: start: 200909, end: 201112

REACTIONS (11)
  - Epstein-Barr virus infection [Fatal]
  - Cardiac arrest [Fatal]
  - Extranodal marginal zone B-cell lymphoma (MALT type) [Unknown]
  - Diffuse large B-cell lymphoma [Unknown]
  - Hyperkalaemia [Unknown]
  - Multi-organ failure [Unknown]
  - Renal failure acute [Unknown]
  - Mucosal inflammation [Unknown]
  - Acute hepatic failure [Unknown]
  - Coagulopathy [Unknown]
  - Acute lung injury [Unknown]
